FAERS Safety Report 4672877-6 (Version None)
Quarter: 2005Q2

REPORT INFORMATION
  Report Type: 
  Country: None (occurrence: None)
  Receive Date: 20050524
  Receipt Date: 20050520
  Transmission Date: 20051028
  Serious: Yes (Hospitalization, Disabling)
  Sender: FDA-Public Use
  Company Number: 05-05-0914

PATIENT
  Age: 4 Year
  Sex: Female

DRUGS (1)
  1. BACLOFEN [Suspect]
     Indication: MUSCLE SPASTICITY
     Dosage: 2.5 MG MANE ORAL
     Route: 048
     Dates: start: 20020101, end: 20050101

REACTIONS (1)
  - COLITIS [None]
